FAERS Safety Report 9951720 (Version 1)
Quarter: 2014Q1

REPORT INFORMATION
  Report Type: Report from Study
  Country: US (occurrence: US)
  Receive Date: 20140304
  Receipt Date: 20140304
  Transmission Date: 20141002
  Serious: No
  Sender: FDA-Public Use
  Company Number: US-ABBVIE-13P-163-1072919-00

PATIENT
  Age: 69 Year
  Sex: Female
  Weight: 97.61 kg

DRUGS (8)
  1. HUMIRA [Suspect]
     Indication: RHEUMATOID ARTHRITIS
     Dates: start: 2011, end: 201209
  2. METHOTREXATE [Concomitant]
     Indication: RHEUMATOID ARTHRITIS
  3. DIOVAN [Concomitant]
     Indication: HYPERTENSION
  4. AMBIEN [Concomitant]
     Indication: INSOMNIA
  5. LORAZEPAM [Concomitant]
     Indication: ANXIETY
  6. EFFEXOR [Concomitant]
     Indication: DEPRESSION
  7. FOLIC ACID [Concomitant]
     Indication: PRODUCT USED FOR UNKNOWN INDICATION
  8. PLAVIX [Concomitant]
     Indication: CAROTID ARTERY DISEASE

REACTIONS (1)
  - Arthralgia [Not Recovered/Not Resolved]
